FAERS Safety Report 5885724-1 (Version None)
Quarter: 2008Q3

REPORT INFORMATION
  Report Type: 
  Country: None (occurrence: None)
  Receive Date: 20080916
  Receipt Date: 20080904
  Transmission Date: 20090109
  Serious: Yes (Hospitalization)
  Sender: FDA-Public Use
  Company Number: US-ELI_LILLY_AND_COMPANY-US200809001610

PATIENT
  Sex: Female
  Weight: 99.773 kg

DRUGS (4)
  1. BYETTA [Suspect]
     Indication: TYPE 2 DIABETES MELLITUS
     Dosage: 5 UG, 2/D
     Route: 058
     Dates: start: 20060101, end: 20060101
  2. BYETTA [Suspect]
     Dosage: 10 UG, 2/D
     Route: 058
     Dates: start: 20060101
  3. METFORMIN [Concomitant]
     Indication: TYPE 2 DIABETES MELLITUS
     Dosage: 1000 MG, 2/D
  4. ANTIFUNGALS FOR TOPICAL USE [Concomitant]
     Indication: FUNGAL INFECTION
     Dosage: UNK, UNKNOWN
     Dates: end: 20080801

REACTIONS (2)
  - BLOOD GLUCOSE INCREASED [None]
  - EXCESSIVE SKIN [None]
